FAERS Safety Report 21039687 (Version 2)
Quarter: 2022Q3

REPORT INFORMATION
  Report Type: Other
  Country: JM (occurrence: None)
  Receive Date: 20220704
  Receipt Date: 20220902
  Transmission Date: 20221027
  Serious: Yes (Hospitalization)
  Sender: FDA-Public Use
  Company Number: JM-ROCHE-3126640

PATIENT
  Sex: Female

DRUGS (1)
  1. HERCEPTIN [Suspect]
     Active Substance: TRASTUZUMAB
     Indication: Product used for unknown indication
     Dosage: FREQUENCY WAS NOT REPORTED
     Route: 065

REACTIONS (1)
  - Pulmonary oedema [Unknown]
